FAERS Safety Report 18928742 (Version 4)
Quarter: 2021Q2

REPORT INFORMATION
  Report Type: Report from Study
  Country: US (occurrence: US)
  Receive Date: 20210223
  Receipt Date: 20210504
  Transmission Date: 20210717
  Serious: No
  Sender: FDA-Public Use
  Company Number: NVSC2021US035385

PATIENT
  Age: 70 Year
  Sex: Male

DRUGS (1)
  1. ENTRESTO [Suspect]
     Active Substance: SACUBITRIL\VALSARTAN
     Indication: PRODUCT USED FOR UNKNOWN INDICATION
     Dosage: 50 MG, BID (24.26 MG)
     Route: 048
     Dates: start: 20210104

REACTIONS (8)
  - Memory impairment [Unknown]
  - Weight decreased [Unknown]
  - Seasonal allergy [Unknown]
  - Cough [Recovered/Resolved]
  - Blood pressure decreased [Not Recovered/Not Resolved]
  - Fluid retention [Recovered/Resolved]
  - Fatigue [Unknown]
  - Speech disorder [Unknown]

NARRATIVE: CASE EVENT DATE: 202101
